FAERS Safety Report 24392012 (Version 2)
Quarter: 2025Q1

REPORT INFORMATION
  Report Type: Spontaneous
  Country: RU (occurrence: RU)
  Receive Date: 20241003
  Receipt Date: 20250217
  Transmission Date: 20250408
  Serious: Yes (Other)
  Sender: SERVIER
  Company Number: RU-SERVIER-S24012389

PATIENT

DRUGS (1)
  1. ONCASPAR [Suspect]
     Active Substance: PEGASPARGASE
     Indication: Acute lymphocytic leukaemia
     Route: 065
     Dates: start: 20240528, end: 20240813

REACTIONS (5)
  - Subclavian vein thrombosis [Recovered/Resolved]
  - Jugular vein thrombosis [Recovered/Resolved]
  - Cardiac ventricular thrombosis [Recovered/Resolved]
  - Subclavian vein thrombosis [Recovered/Resolved]
  - Body temperature increased [Recovered/Resolved]

NARRATIVE: CASE EVENT DATE: 20240101
